FAERS Safety Report 5449089-1 (Version None)
Quarter: 2007Q3

REPORT INFORMATION
  Report Type: 
  Country: None (occurrence: None)
  Receive Date: 20070911
  Receipt Date: 20070904
  Transmission Date: 20080115
  Serious: Yes (Hospitalization)
  Sender: FDA-Public Use
  Company Number: FR-PURDUE-GBR_2007_0003154

PATIENT
  Age: 83 Year
  Sex: Female

DRUGS (2)
  1. OXYCONTIN [Suspect]
     Indication: ARTHRALGIA
     Dosage: 5 MG, DAILY
     Route: 048
     Dates: start: 20070709, end: 20070726
  2. OXYNORM CAPSULES 5 MG [Suspect]
     Indication: ARTHRALGIA
     Dosage: 5 MG, PRN
     Route: 048
     Dates: start: 20070709, end: 20070726

REACTIONS (2)
  - CONFUSIONAL STATE [None]
  - RENAL FAILURE ACUTE [None]
